FAERS Safety Report 5133957-4 (Version None)
Quarter: 2006Q4

REPORT INFORMATION
  Report Type: 
  Country: None (occurrence: None)
  Receive Date: 20061019
  Receipt Date: 20061009
  Transmission Date: 20070319
  Serious: Yes (Other)
  Sender: FDA-Public Use
  Company Number: 2006124676

PATIENT

DRUGS (1)
  1. ZOLOFT [Suspect]

REACTIONS (4)
  - DIZZINESS [None]
  - FALL [None]
  - FATIGUE [None]
  - STRESS [None]
